FAERS Safety Report 5281222-7 (Version None)
Quarter: 2007Q1

REPORT INFORMATION
  Report Type: 
  Country: None (occurrence: None)
  Receive Date: 20070323
  Receipt Date: 20070315
  Transmission Date: 20070707
  Serious: Yes (Death)
  Sender: FDA-Public Use
  Company Number: 2007SP002468

PATIENT
  Age: 34 Year
  Sex: Male

DRUGS (2)
  1. TEMODAL [Suspect]
     Indication: OLIGODENDROGLIOMA
     Dosage: 350 MG;QD;PO
     Route: 048
     Dates: start: 20060314, end: 20060315
  2. CARBAMAZEPINE (CON.) [Concomitant]

REACTIONS (2)
  - CONVULSION [None]
  - REFUSAL OF TREATMENT BY PATIENT [None]
